FAERS Safety Report 6164279-0 (Version None)
Quarter: 2009Q2

REPORT INFORMATION
  Report Type: 
  Country: None (occurrence: None)
  Receive Date: 20090422
  Receipt Date: 20090413
  Transmission Date: 20091009
  Serious: Yes (Other)
  Sender: FDA-Public Use
  Company Number: CN-GENENTECH-279842

PATIENT
  Age: 40 Year
  Sex: Female

DRUGS (3)
  1. HERCEPTIN [Suspect]
     Indication: BREAST CANCER
     Dosage: 6 MG/ML, Q3W
     Route: 041
     Dates: start: 20090101, end: 20090325
  2. TAXOTERE [Concomitant]
     Indication: DRUG USE FOR UNKNOWN INDICATION
     Dosage: UNK
     Dates: start: 20090101, end: 20090201
  3. FUROSEMIDE [Concomitant]
     Indication: UNEVALUABLE EVENT
     Dosage: UNK

REACTIONS (2)
  - OEDEMA [None]
  - PERICARDIAL EFFUSION [None]
